FAERS Safety Report 11259530 (Version 1)
Quarter: 2015Q3

REPORT INFORMATION
  Report Type: Spontaneous
  Country: DK (occurrence: DK)
  Receive Date: 20150710
  Receipt Date: 20150710
  Transmission Date: 20151125
  Serious: Yes (Hospitalization, Other)
  Sender: FDA-Public Use
  Company Number: DK-BAYER-2015-367326

PATIENT
  Age: 31 Year
  Sex: Female

DRUGS (1)
  1. MIRENA [Suspect]
     Active Substance: LEVONORGESTREL
     Dosage: 20 MCG/24HR, CONT
     Route: 015
     Dates: start: 20150522, end: 20150625

REACTIONS (13)
  - Fatigue [Not Recovered/Not Resolved]
  - Syncope [Recovered/Resolved]
  - Dizziness [Not Recovered/Not Resolved]
  - Urticaria [Recovering/Resolving]
  - Syncope [None]
  - Vomiting [None]
  - Somnolence [Not Recovered/Not Resolved]
  - Genital haemorrhage [Recovering/Resolving]
  - Nausea [Recovering/Resolving]
  - Syncope [None]
  - Angioedema [Recovering/Resolving]
  - Dyspnoea [Recovering/Resolving]
  - Seasonal allergy [Recovering/Resolving]

NARRATIVE: CASE EVENT DATE: 20150623
